FAERS Safety Report 8156649-6 (Version None)
Quarter: 2012Q1

REPORT INFORMATION
  Report Type: 
  Country: None (occurrence: None)
  Receive Date: 20120221
  Receipt Date: 20120221
  Transmission Date: 20120608
  Serious: Yes (Hospitalization)
  Sender: FDA-Public Use
  Company Number: None

PATIENT
  Sex: Female
  Weight: 120 kg

DRUGS (2)
  1. TAXOTERE [Suspect]
     Dosage: 148 MG
  2. CYCLOPHOSPHAMIDE [Suspect]
     Dosage: 1182 MG

REACTIONS (12)
  - STREPTOCOCCAL SEPSIS [None]
  - BLOOD PRESSURE DIASTOLIC INCREASED [None]
  - BACTERAEMIA [None]
  - LABORATORY TEST INTERFERENCE [None]
  - PAIN [None]
  - HAEMOGLOBIN DECREASED [None]
  - HEART RATE INCREASED [None]
  - WHITE BLOOD CELL COUNT DECREASED [None]
  - PHARYNGITIS [None]
  - MUCOSAL INFLAMMATION [None]
  - BLOOD URINE PRESENT [None]
  - VIRAL UPPER RESPIRATORY TRACT INFECTION [None]
